FAERS Safety Report 9294718 (Version 1)
Quarter: 2013Q2

REPORT INFORMATION
  Report Type: Spontaneous
  Country: US (occurrence: US)
  Receive Date: 20130517
  Receipt Date: 20130517
  Transmission Date: 20140414
  Serious: No
  Sender: FDA-Public Use
  Company Number: US-009507513-1305USA006786

PATIENT
  Sex: 0

DRUGS (2)
  1. ASMANEX TWISTHALER [Suspect]
     Indication: ASTHMA
     Dosage: ONCE IN THE MORNING AND ONCE AT NIGHT, BID
     Route: 055
     Dates: start: 20130401
  2. ASMANEX TWISTHALER [Suspect]
     Dosage: ONCE IN THE MORNING AND ONCE AT NIGHT, BID
     Route: 055
     Dates: start: 201210

REACTIONS (4)
  - Asthma [Unknown]
  - Device malfunction [Unknown]
  - Drug dose omission [Unknown]
  - Product quality issue [Unknown]
